FAERS Safety Report 5170559-8 (Version None)
Quarter: 2006Q4

REPORT INFORMATION
  Report Type: 
  Country: None (occurrence: None)
  Receive Date: 20061205
  Receipt Date: 20061123
  Transmission Date: 20070319
  Serious: Yes (Disabling)
  Sender: FDA-Public Use
  Company Number: 150232ISR

PATIENT
  Age: 42 Year
  Sex: Male

DRUGS (1)
  1. CIPROFLOXACIN [Suspect]
     Indication: EPIDIDYMITIS
     Dosage: 500 MG (250 MG, 2 IN 1 D)
     Route: 048
     Dates: start: 20061018, end: 20061025

REACTIONS (2)
  - BACK PAIN [None]
  - DYSURIA [None]
